FAERS Safety Report 16653552 (Version 5)
Quarter: 2021Q3

REPORT INFORMATION
  Report Type: Spontaneous
  Country: US (occurrence: US)
  Receive Date: 20190731
  Receipt Date: 20210726
  Transmission Date: 20211014
  Serious: Yes (Other)
  Sender: FDA-Public Use
  Company Number: US-GILEAD-2019-0420336

PATIENT
  Age: 46 Year
  Sex: Male
  Weight: 86.17 kg

DRUGS (16)
  1. ATORVASTATIN [Concomitant]
     Active Substance: ATORVASTATIN
  2. REYATAZ [Concomitant]
     Active Substance: ATAZANAVIR SULFATE
  3. ASPIRIN (E.C.) [Concomitant]
     Active Substance: ASPIRIN
  4. VIAGRA [Concomitant]
     Active Substance: SILDENAFIL CITRATE
  5. METFORMIN [Concomitant]
     Active Substance: METFORMIN HYDROCHLORIDE
  6. TRUVADA [Suspect]
     Active Substance: EMTRICITABINE\TENOFOVIR DISOPROXIL FUMARATE
     Indication: HIV INFECTION
     Dosage: UNK
     Route: 048
     Dates: start: 200408, end: 200607
  7. VALTREX [Concomitant]
     Active Substance: VALACYCLOVIR HYDROCHLORIDE
  8. PROVENTIL HFA [SALBUTAMOL] [Concomitant]
  9. CELEXA [CELECOXIB] [Concomitant]
     Active Substance: CELECOXIB
     Dosage: UNK
     Dates: start: 201603
  10. VIREAD [Suspect]
     Active Substance: TENOFOVIR DISOPROXIL FUMARATE
     Indication: HIV INFECTION
     Dosage: UNK
     Route: 048
     Dates: start: 200306, end: 200406
  11. VITAMIN D [COLECALCIFEROL] [Concomitant]
     Active Substance: CHOLECALCIFEROL
  12. NAPROXEN. [Concomitant]
     Active Substance: NAPROXEN
  13. NORVIR [Concomitant]
     Active Substance: RITONAVIR
  14. ATRIPLA [Suspect]
     Active Substance: EFAVIRENZ\EMTRICITABINE\TENOFOVIR DISOPROXIL FUMARATE
     Indication: HIV INFECTION
     Dosage: UNK
     Route: 048
     Dates: start: 200608, end: 201705
  15. ACETAMINOPHEN. [Concomitant]
     Active Substance: ACETAMINOPHEN
  16. VITAMIN B12 [Concomitant]
     Active Substance: CYANOCOBALAMIN

REACTIONS (10)
  - Chronic kidney disease [Unknown]
  - Bone loss [Recovered/Resolved]
  - Osteonecrosis [Unknown]
  - Economic problem [Unknown]
  - Bone density decreased [Unknown]
  - Anxiety [Unknown]
  - Multiple fractures [Unknown]
  - Pain [Unknown]
  - Emotional distress [Unknown]
  - Anhedonia [Unknown]

NARRATIVE: CASE EVENT DATE: 200411
